FAERS Safety Report 23960099 (Version 2)
Quarter: 2024Q3

REPORT INFORMATION
  Report Type: Report from Study
  Country: US (occurrence: US)
  Receive Date: 20240611
  Receipt Date: 20240912
  Transmission Date: 20241017
  Serious: Yes (Other)
  Sender: ABBVIE
  Company Number: US-ABBVIE-5793140

PATIENT
  Age: 56 Year
  Sex: Female

DRUGS (2)
  1. RINVOQ [Suspect]
     Active Substance: UPADACITINIB
     Indication: Rheumatoid arthritis
     Dosage: FORM STRENGTH: 15 MILLIGRAM
     Route: 048
     Dates: start: 20230812
  2. RINVOQ [Suspect]
     Active Substance: UPADACITINIB
     Indication: Rheumatoid arthritis
     Route: 048

REACTIONS (11)
  - Loss of consciousness [Unknown]
  - Epistaxis [Unknown]
  - Face injury [Unknown]
  - Muscle spasms [Unknown]
  - Mouth haemorrhage [Unknown]
  - Tooth fracture [Unknown]
  - Concussion [Unknown]
  - Syncope [Unknown]
  - Fall [Unknown]
  - Osteomyelitis [Recovering/Resolving]
  - Tooth injury [Unknown]

NARRATIVE: CASE EVENT DATE: 20240501
